FAERS Safety Report 5234516-5 (Version None)
Quarter: 2007Q1

REPORT INFORMATION
  Report Type: 
  Country: None (occurrence: None)
  Receive Date: 20070208
  Receipt Date: 20070208
  Transmission Date: 20070707
  Serious: Yes (Hospitalization)
  Sender: FDA-Public Use
  Company Number: None

PATIENT
  Sex: Male
  Weight: 78 kg

DRUGS (12)
  1. TEMODAR [Suspect]
     Indication: GLIOSARCOMA
     Dosage: 200MG/M2 DAYS 1-5 PO
     Route: 048
     Dates: start: 20070117, end: 20070121
  2. SCH66336 [Suspect]
     Indication: GLIOSARCOMA
     Dosage: 100MG DAYS 1-28 PO
     Route: 048
     Dates: start: 20070117, end: 20070201
  3. ENALAPRIL [Concomitant]
  4. ASPIRIN [Concomitant]
  5. KEPPRA [Concomitant]
  6. DEPAKOTE [Concomitant]
  7. ZOCOR [Concomitant]
  8. DETROL LA [Concomitant]
  9. ATIVAN [Concomitant]
  10. ZOLOFT [Concomitant]
  11. COLACE [Concomitant]
  12. MULTI-VITAMIN [Concomitant]

REACTIONS (6)
  - BLOOD PRESSURE INCREASED [None]
  - CONFUSIONAL STATE [None]
  - CONVULSION [None]
  - HYPONATRAEMIA [None]
  - HYPOTENSION [None]
  - MUSCULAR WEAKNESS [None]
